FAERS Safety Report 7607460-3 (Version None)
Quarter: 2011Q3

REPORT INFORMATION
  Report Type: 
  Country: None (occurrence: None)
  Receive Date: 20110713
  Receipt Date: 20110628
  Transmission Date: 20111222
  Serious: Yes (Other)
  Sender: FDA-Public Use
  Company Number: US-WATSON-2011-09752

PATIENT
  Sex: Male

DRUGS (5)
  1. IBUPROFEN (ADVIL) [Concomitant]
     Indication: PRODUCT USED FOR UNKNOWN INDICATION
  2. FLEXERIL [Concomitant]
     Indication: PRODUCT USED FOR UNKNOWN INDICATION
     Dosage: 10 MG, UNK
  3. LIPITOR [Concomitant]
     Indication: PRODUCT USED FOR UNKNOWN INDICATION
  4. PRIMIDONE [Concomitant]
     Indication: PRODUCT USED FOR UNKNOWN INDICATION
  5. RAPAFLO [Suspect]
     Indication: URINARY RETENTION
     Dosage: ONE TABLET WAS TAKEN
     Route: 048
     Dates: start: 20110627, end: 20110627

REACTIONS (5)
  - SWOLLEN TONGUE [None]
  - HEADACHE [None]
  - HYPERSENSITIVITY [None]
  - DYSPNOEA [None]
  - SWELLING FACE [None]
